FAERS Safety Report 17212165 (Version 3)
Quarter: 2020Q1

REPORT INFORMATION
  Report Type: Spontaneous
  Country: BR (occurrence: BR)
  Receive Date: 20191230
  Receipt Date: 20200221
  Transmission Date: 20200409
  Serious: Yes (Other)
  Sender: FDA-Public Use
  Company Number: BR-AMGEN-BRASP2019215389

PATIENT
  Age: 89 Year
  Sex: Female

DRUGS (4)
  1. METICORTEN [Concomitant]
     Active Substance: PREDNISONE
     Indication: RHEUMATOID ARTHRITIS
     Dosage: 5 MILLIGRAM, BID (2X/DAY IN THE MORNING AND AFTERNOON)
  2. TECNOMET [METHOTREXATE] [Concomitant]
     Active Substance: METHOTREXATE
     Indication: RHEUMATOID ARTHRITIS
     Dosage: UNK
  3. ENBREL [Suspect]
     Active Substance: ETANERCEPT
     Indication: RHEUMATOID ARTHRITIS
     Dosage: UNK UNK, QWK
     Route: 065
     Dates: start: 2018, end: 201812
  4. METICORTEN [Concomitant]
     Active Substance: PREDNISONE
     Dosage: 5 MG, 2X/DAY IN THE MORNING AND AFTERNOON

REACTIONS (3)
  - Malignant neoplasm of eyelid [Recovered/Resolved]
  - Malaise [Not Recovered/Not Resolved]
  - Furuncle [Recovered/Resolved]

NARRATIVE: CASE EVENT DATE: 2018
